FAERS Safety Report 4506418-0 (Version None)
Quarter: 2004Q4

REPORT INFORMATION
  Report Type: 
  Country: None (occurrence: None)
  Receive Date: 20041025
  Receipt Date: 20040802
  Transmission Date: 20050328
  Serious: Yes (Hospitalization)
  Sender: FDA-Public Use
  Company Number: US-JNJFOC-20040801011

PATIENT
  Age: 22 Year
  Sex: Female

DRUGS (2)
  1. REMICADE [Suspect]
     Indication: CROHN'S DISEASE
     Dosage: 800 MG, 1 IN 8 WEEK, INTRAVENOUS
     Route: 042
     Dates: start: 20040727
  2. METHOTREXATE SODIUM [Concomitant]

REACTIONS (1)
  - CONVULSION [None]
